FAERS Safety Report 6756785-2 (Version None)
Quarter: 2010Q2

REPORT INFORMATION
  Report Type: 
  Country: None (occurrence: None)
  Receive Date: 20100604
  Receipt Date: 20100528
  Transmission Date: 20101027
  Serious: Yes (Hospitalization)
  Sender: FDA-Public Use
  Company Number: FR-JNJFOC-20100600057

PATIENT
  Sex: Male

DRUGS (10)
  1. HALDOL [Suspect]
     Indication: AGITATION
     Route: 048
  2. TRAMADOL HCL [Concomitant]
  3. BACLOFENE [Concomitant]
     Indication: MUSCLE SPASTICITY
  4. URBANYL [Concomitant]
     Indication: DRUG USE FOR UNKNOWN INDICATION
  5. FORLAX [Concomitant]
  6. DAFALGAN [Concomitant]
  7. NOVORAPID [Concomitant]
  8. DANTRIUM [Concomitant]
  9. LOVENOX [Concomitant]
     Route: 058
  10. LEVEMIR [Concomitant]

REACTIONS (4)
  - DEHYDRATION [None]
  - HYPERPROTEINAEMIA [None]
  - HYPERTHERMIA [None]
  - LEUKOCYTOSIS [None]
